FAERS Safety Report 19835772 (Version 6)
Quarter: 2021Q4

REPORT INFORMATION
  Report Type: Spontaneous
  Country: CA (occurrence: CA)
  Receive Date: 20210916
  Receipt Date: 20211113
  Transmission Date: 20220303
  Serious: Yes (Hospitalization, Other)
  Sender: FDA-Public Use
  Company Number: CA-CELLTRION INC.-2020CA030869

PATIENT

DRUGS (9)
  1. INFLECTRA [Suspect]
     Active Substance: INFLIXIMAB-DYYB
     Indication: Colitis ulcerative
     Dosage: UNK (ONE DOSE, GIVEN IN HOSPITAL)
     Route: 042
     Dates: start: 20201016, end: 20201016
  2. INFLECTRA [Suspect]
     Active Substance: INFLIXIMAB-DYYB
     Dosage: 900 MG AT WEEK 2, 6 THEN EVERY 8 WEEKS
     Route: 042
     Dates: start: 20201030
  3. INFLECTRA [Suspect]
     Active Substance: INFLIXIMAB-DYYB
     Dosage: 900 MG AT WEEK 2, 6 THEN EVERY 8 WEEKS
     Route: 042
     Dates: start: 20201125
  4. INFLECTRA [Suspect]
     Active Substance: INFLIXIMAB-DYYB
     Dosage: 900 MG AT WEEK 2, 6 THEN EVERY 8 WEEKS
     Route: 042
     Dates: start: 20210120
  5. INFLECTRA [Suspect]
     Active Substance: INFLIXIMAB-DYYB
     Dosage: 900 MG AT WEEK 2, 6 THEN EVERY 8 WEEKS
     Route: 042
     Dates: start: 20210315
  6. INFLECTRA [Suspect]
     Active Substance: INFLIXIMAB-DYYB
     Dosage: 900 MG AT WEEK 2, 6 THEN EVERY 8 WEEKS
     Route: 042
     Dates: start: 20210510
  7. INFLECTRA [Suspect]
     Active Substance: INFLIXIMAB-DYYB
     Dosage: 900 MG AT WEEK 2, 6 THEN EVERY 8 WEEKS
     Route: 042
     Dates: start: 20210705
  8. INFLECTRA [Suspect]
     Active Substance: INFLIXIMAB-DYYB
     Dosage: 900 MG AT WEEK 2, 6 THEN EVERY 8 WEEKS
     Route: 042
     Dates: start: 20210826
  9. INFLECTRA [Suspect]
     Active Substance: INFLIXIMAB-DYYB
     Dosage: 900 MG AT WEEK 2, 6 THEN EVERY 8 WEEKS
     Route: 042
     Dates: start: 20211018

REACTIONS (15)
  - Condition aggravated [Not Recovered/Not Resolved]
  - Pneumonia [Recovering/Resolving]
  - COVID-19 [Unknown]
  - Malaise [Unknown]
  - Weight increased [Unknown]
  - Malaise [Not Recovered/Not Resolved]
  - Asthenia [Unknown]
  - Dizziness [Unknown]
  - Nausea [Unknown]
  - Mutism [Unknown]
  - Off label use [Unknown]
  - Off label use [Unknown]
  - Inappropriate schedule of product administration [Unknown]
  - Off label use [Unknown]
  - Weight decreased [Unknown]

NARRATIVE: CASE EVENT DATE: 20201030
